FAERS Safety Report 21369930 (Version 1)
Quarter: 2022Q3

REPORT INFORMATION
  Report Type: Spontaneous
  Country: US (occurrence: US)
  Receive Date: 20220923
  Receipt Date: 20220923
  Transmission Date: 20221026
  Serious: Yes (Death)
  Sender: FDA-Public Use
  Company Number: US-Vifor (International) Inc.-VIT-2022-06523

PATIENT
  Age: 61 Year
  Sex: Female
  Weight: 105.9 kg

DRUGS (2)
  1. MIRCERA [Suspect]
     Active Substance: METHOXY POLYETHYLENE GLYCOL-EPOETIN BETA
     Indication: Anaemia
     Route: 042
     Dates: start: 20220910, end: 20220910
  2. VENOFER [Suspect]
     Active Substance: IRON SUCROSE
     Indication: Product used for unknown indication
     Route: 042

REACTIONS (1)
  - Unresponsive to stimuli [Fatal]

NARRATIVE: CASE EVENT DATE: 20220910
